FAERS Safety Report 4350755-X (Version None)
Quarter: 2004Q2

REPORT INFORMATION
  Report Type: 
  Country: None (occurrence: None)
  Receive Date: 20040428
  Receipt Date: 20040413
  Transmission Date: 20050107
  Serious: Yes (Other)
  Sender: FDA-Public Use
  Company Number: USA040464848

PATIENT
  Age: 78 Year
  Sex: Female

DRUGS (10)
  1. FORTEO [Suspect]
     Indication: OSTEOPOROSIS
     Dates: start: 20031201
  2. THEO-DUR [Concomitant]
  3. CALAN (VERAPAMIL) [Concomitant]
  4. PRILOSEC [Concomitant]
  5. LASIX [Concomitant]
  6. ADVAIR DISKUS 100/50 [Concomitant]
  7. MIACALCIN [Concomitant]
  8. VITAMIN C [Concomitant]
  9. CALTRATE (CALCIUM CARBONATE) [Concomitant]
  10. COUMADIN [Concomitant]

REACTIONS (5)
  - ANXIETY [None]
  - BLOOD CALCIUM INCREASED [None]
  - BLOOD DISORDER [None]
  - FEELING ABNORMAL [None]
  - HEADACHE [None]
